FAERS Safety Report 7135831-0 (Version None)
Quarter: 2010Q4

REPORT INFORMATION
  Report Type: 
  Country: None (occurrence: None)
  Receive Date: 20101203
  Receipt Date: 20101126
  Transmission Date: 20110411
  Serious: Yes (Other)
  Sender: FDA-Public Use
  Company Number: IT-PFIZER INC-2010159139

PATIENT
  Age: 39 Year
  Sex: Female

DRUGS (2)
  1. EFFEXOR XR [Suspect]
     Indication: BIPOLAR I DISORDER
     Dosage: 75 MG DAILY
     Route: 048
  2. EFFEXOR XR [Suspect]
     Dosage: 150 MG, 1X/DAY
     Route: 048
     Dates: end: 20100101

REACTIONS (2)
  - BLOOD CHOLESTEROL INCREASED [None]
  - EUPHORIC MOOD [None]
